FAERS Safety Report 9257977 (Version 1)
Quarter: 2013Q1

REPORT INFORMATION
  Report Type: Spontaneous
  Country: US (occurrence: None)
  Receive Date: 20121212
  Receipt Date: 20121212
  Transmission Date: 20140127
  Serious: No
  Sender: FDA-Public Use
  Company Number: 1208USA010820

PATIENT
  Age: 56 Year
  Sex: Male
  Weight: 73.5 kg

DRUGS (6)
  1. VICTRELIS [Suspect]
     Route: 048
  2. PEGINTERFERON ALFA-2B [Suspect]
     Route: 058
  3. ATACAND [Suspect]
     Route: 048
  4. RIBASPHERE [Concomitant]
  5. HYDROXYZINE HYDROCHLORIDE [Concomitant]
  6. TYLENOL [Concomitant]

REACTIONS (2)
  - Anaemia [None]
  - Capsule physical issue [None]
